FAERS Safety Report 17995188 (Version 1)
Quarter: 2020Q3

REPORT INFORMATION
  Report Type: Spontaneous
  Country: FR (occurrence: FR)
  Receive Date: 20200708
  Receipt Date: 20200708
  Transmission Date: 20201103
  Serious: Yes (Death, Hospitalization)
  Sender: FDA-Public Use
  Company Number: FR-TEVA-2020-FR-1792800

PATIENT
  Age: 82 Year
  Sex: Female
  Weight: 77 kg

DRUGS (8)
  1. LEVOFLOXACINE [Suspect]
     Active Substance: LEVOFLOXACIN
     Indication: OSTEOMYELITIS
     Dosage: 750 MG
     Route: 048
     Dates: start: 20180719, end: 20180727
  2. CLINDAMYCINE BASE [Suspect]
     Active Substance: CLINDAMYCIN HYDROCHLORIDE
     Indication: OSTEOMYELITIS
     Dosage: 1800 MG
     Route: 048
     Dates: start: 20180719, end: 20180727
  3. PRITOR [Concomitant]
  4. PARACETAMOL [Concomitant]
     Active Substance: ACETAMINOPHEN
  5. EXELON PATCH [Concomitant]
     Active Substance: RIVASTIGMINE
  6. DEROXAT 10 MG, COMPRIME PELLICULE SECABLE [Concomitant]
  7. FLECAINE 100 MG, COMPRIME SECABLE [Concomitant]
     Active Substance: FLECAINIDE ACETATE
  8. TRAMADOL (CHLORHYDRATE DE) [Concomitant]
     Active Substance: TRAMADOL HYDROCHLORIDE

REACTIONS (2)
  - Hyponatraemia [Recovered/Resolved]
  - Acute kidney injury [Not Recovered/Not Resolved]

NARRATIVE: CASE EVENT DATE: 20180724
